FAERS Safety Report 7846638-0 (Version None)
Quarter: 2011Q4

REPORT INFORMATION
  Report Type: 
  Country: None (occurrence: None)
  Receive Date: 20111025
  Receipt Date: 20111018
  Transmission Date: 20120403
  Serious: Yes (Hospitalization, Other)
  Sender: FDA-Public Use
  Company Number: PHHY2011FR72290

PATIENT
  Sex: Male
  Weight: 85 kg

DRUGS (2)
  1. IMATINIB MESYLATE [Suspect]
     Indication: CHRONIC MYELOID LEUKAEMIA
     Dosage: 400 MG, DAILY
     Route: 065
     Dates: start: 20060622
  2. VALSARTAN [Concomitant]
     Dosage: 80 MG, DAILY

REACTIONS (15)
  - OSTEOARTHRITIS [None]
  - SUPRAVENTRICULAR EXTRASYSTOLES [None]
  - VERTIGO [None]
  - PRESBYACUSIS [None]
  - VENOUS INSUFFICIENCY [None]
  - PERIVENTRICULAR LEUKOMALACIA [None]
  - MALAISE [None]
  - VOMITING [None]
  - FLATULENCE [None]
  - PAIN IN EXTREMITY [None]
  - NYSTAGMUS [None]
  - RENAL FAILURE CHRONIC [None]
  - ABDOMINAL DISTENSION [None]
  - RENAL CYST [None]
  - DIZZINESS [None]
